FAERS Safety Report 8486703-0 (Version None)
Quarter: 2012Q3

REPORT INFORMATION
  Report Type: 
  Country: None (occurrence: None)
  Receive Date: 20120704
  Receipt Date: 20120622
  Transmission Date: 20120928
  Serious: Yes (Other)
  Sender: FDA-Public Use
  Company Number: US-NOVOPROD-333493

PATIENT
  Age: 62 Year
  Sex: Female

DRUGS (14)
  1. CELEXA [Concomitant]
     Indication: PRODUCT USED FOR UNKNOWN INDICATION
     Dosage: UNKNOWN
  2. CENTRUM                            /00554501/ [Concomitant]
     Indication: VITAMIN SUPPLEMENTATION
     Dosage: UNKNOWN
  3. OMEGA 3                            /00931501/ [Concomitant]
     Indication: PRODUCT USED FOR UNKNOWN INDICATION
     Dosage: UNKNOWN
  4. COD LIVER OIL [Concomitant]
     Indication: PRODUCT USED FOR UNKNOWN INDICATION
     Dosage: UNKNOWN
  5. LISINOPRIL [Concomitant]
     Indication: HYPERTENSION
     Dosage: UNKNOWN
  6. VICTOZA [Suspect]
     Indication: TYPE 2 DIABETES MELLITUS
     Dosage: 1.2 MG, QD
     Route: 058
     Dates: start: 20110406, end: 20110811
  7. VITAMIN D [Concomitant]
     Indication: VITAMIN D DECREASED
     Dosage: UNKNOWN
  8. POTASSIUM                          /00031402/ [Concomitant]
     Indication: PRODUCT USED FOR UNKNOWN INDICATION
     Dosage: UNKNOWN
  9. CALCIUM +VIT D [Concomitant]
     Indication: VITAMIN SUPPLEMENTATION
     Dosage: UNKNOWN
  10. ZOCOR [Concomitant]
     Indication: BLOOD CHOLESTEROL INCREASED
     Dosage: UNKNOWN
  11. METFORMIN HYDROCHLORIDE [Concomitant]
     Indication: TYPE 2 DIABETES MELLITUS
     Dosage: UNKNOWN
  12. VICTOZA [Suspect]
     Indication: OVERWEIGHT
     Dosage: 1.8 MG, QD
     Route: 058
  13. HYDROCHLOROTHIAZIDE [Concomitant]
     Indication: HYPERTENSION
     Dosage: UNKNOWN
  14. CALCIUM CARBONATE [Concomitant]
     Indication: PRODUCT USED FOR UNKNOWN INDICATION
     Dosage: UNKNOWN

REACTIONS (1)
  - THYROID CANCER [None]
